FAERS Safety Report 9243191 (Version 3)
Quarter: 2013Q2

REPORT INFORMATION
  Report Type: Report from Study
  Country: DE (occurrence: DE)
  Receive Date: 20130419
  Receipt Date: 20130605
  Transmission Date: 20140414
  Serious: Yes (Hospitalization, Other)
  Sender: FDA-Public Use
  Company Number: DE-AMGEN-DEUCT2013027313

PATIENT
  Age: 69 Year
  Sex: Female
  Weight: 81 kg

DRUGS (10)
  1. ETANERCEPT [Suspect]
     Indication: PRODUCT USED FOR UNKNOWN INDICATION
     Dosage: 50 MG, WEEKLY
     Route: 065
     Dates: start: 20130104, end: 20130306
  2. ACEMETACIN [Concomitant]
     Indication: RHEUMATOID ARTHRITIS
     Dosage: UNK
     Route: 048
  3. TORASEMIDE [Concomitant]
     Indication: HYPERTENSION
     Dosage: 5 MG, UNK
  4. L-THYROXIN [Concomitant]
     Indication: GOITRE
     Dosage: UNK
  5. AMLODIPINE [Concomitant]
     Indication: HYPERTENSION
     Dosage: 5 MG, UNK
  6. PANTOPRAZOLE [Concomitant]
     Indication: PROPHYLAXIS
     Dosage: 40 MG, UNK
  7. PREDNISOLON                        /00016201/ [Concomitant]
     Indication: RHEUMATOID ARTHRITIS
     Dosage: 7.5 MG, UNK
  8. SIMVASTATIN [Concomitant]
     Dosage: 20 MG, UNK
  9. ALENDRONIC ACID [Concomitant]
     Dosage: 70 MG, UNK
  10. TILIDINE [Concomitant]
     Dosage: 100 / 8MG

REACTIONS (1)
  - Breast cancer [Not Recovered/Not Resolved]
